FAERS Safety Report 10572657 (Version 1)
Quarter: 2014Q4

REPORT INFORMATION
  Report Type: Report from Study
  Country: PL (occurrence: PL)
  Receive Date: 20141110
  Receipt Date: 20141110
  Transmission Date: 20150529
  Serious: Yes (Other)
  Sender: FDA-Public Use
  Company Number: PL-ROCHE-1487563

PATIENT
  Age: 59 Year
  Sex: Male
  Weight: 72 kg

DRUGS (4)
  1. 5-FLUOROURACIL [Suspect]
     Active Substance: FLUOROURACIL
     Dosage: IN 24-HOUR INFUSION ON DAYS 1 AND 2, EVERY 14 DAYS.
     Route: 042
     Dates: start: 20131218, end: 20140312
  2. OXALIPLATIN. [Suspect]
     Active Substance: OXALIPLATIN
     Indication: COLORECTAL CANCER
     Route: 042
     Dates: start: 20131218, end: 20140312
  3. BEVACIZUMAB [Suspect]
     Active Substance: BEVACIZUMAB
     Indication: COLORECTAL CANCER
     Route: 042
     Dates: start: 20131218, end: 20140312
  4. 5-FLUOROURACIL [Suspect]
     Active Substance: FLUOROURACIL
     Indication: COLORECTAL CANCER
     Dosage: ON DAY 1 AND 2, EVERY 14 DAYS.
     Route: 040
     Dates: start: 20131218, end: 20140312

REACTIONS (1)
  - Disease progression [Not Recovered/Not Resolved]

NARRATIVE: CASE EVENT DATE: 20140314
